FAERS Safety Report 6986873-7 (Version None)
Quarter: 2010Q3

REPORT INFORMATION
  Report Type: 
  Country: None (occurrence: None)
  Receive Date: 20100915
  Receipt Date: 20090811
  Transmission Date: 20110219
  Serious: No
  Sender: FDA-Public Use
  Company Number: US-WYE-H10546909

PATIENT
  Age: 54 Year
  Sex: Female

DRUGS (4)
  1. PRISTIQ [Suspect]
     Indication: DEPRESSION
     Dosage: 50 MG, FREQUENCY NOT SPECIFIED
     Route: 048
     Dates: start: 20090711
  2. XANAX [Concomitant]
  3. KLONOPIN [Concomitant]
  4. NEURONTIN [Concomitant]

REACTIONS (3)
  - BLOOD PRESSURE INCREASED [None]
  - HEART RATE INCREASED [None]
  - PALPITATIONS [None]
